FAERS Safety Report 4442622-8 (Version None)
Quarter: 2004Q3

REPORT INFORMATION
  Report Type: 
  Country: None (occurrence: None)
  Receive Date: 20040903
  Receipt Date: 20040512
  Transmission Date: 20050211
  Serious: Yes (Other)
  Sender: FDA-Public Use
  Company Number: 2004UW09831

PATIENT
  Age: 87 Year
  Sex: Female
  Weight: 61.2356 kg

DRUGS (10)
  1. CRESTOR [Suspect]
     Indication: HYPERCHOLESTEROLAEMIA
     Dosage: 5 MG QD PO
     Route: 048
     Dates: start: 20040411
  2. COUMADIN [Concomitant]
  3. LIBRIUM [Concomitant]
  4. PAXIL [Concomitant]
  5. FOLIC ACID [Concomitant]
  6. DIOVAN [Concomitant]
  7. DEMADEX [Concomitant]
  8. K-DUR 10 [Concomitant]
  9. PEPCID [Concomitant]
  10. CARAFATE [Concomitant]

REACTIONS (2)
  - PHOTOPHOBIA [None]
  - VISION BLURRED [None]
